FAERS Safety Report 4399382-9 (Version None)
Quarter: 2004Q2

REPORT INFORMATION
  Report Type: 
  Country: None (occurrence: None)
  Receive Date: 20040607
  Receipt Date: 20040224
  Transmission Date: 20050107
  Serious: No
  Sender: FDA-Public Use
  Company Number: US-SHR-04-021816

PATIENT
  Age: 80 Year
  Sex: Male

DRUGS (1)
  1. CAMPATH [Suspect]
     Indication: CHRONIC LYMPHOCYTIC LEUKAEMIA
     Dosage: 30 MG, 3X/WEEK, INTRAVENOUS
     Route: 042
     Dates: start: 20040126

REACTIONS (3)
  - PYREXIA [None]
  - TREMOR [None]
  - URTICARIA [None]
